FAERS Safety Report 7087525-8 (Version None)
Quarter: 2010Q4

REPORT INFORMATION
  Report Type: 
  Country: None (occurrence: None)
  Receive Date: 20101108
  Receipt Date: 20101027
  Transmission Date: 20110411
  Serious: No
  Sender: FDA-Public Use
  Company Number: US-BIOGENIDEC-2010BI038108

PATIENT
  Age: 50 Year
  Sex: Female

DRUGS (1)
  1. TYSABRI [Suspect]
     Indication: MULTIPLE SCLEROSIS
     Route: 042
     Dates: start: 20050117, end: 20050214

REACTIONS (5)
  - ARTHRITIS [None]
  - BALANCE DISORDER [None]
  - COLITIS ULCERATIVE [None]
  - DIABETES MELLITUS [None]
  - HYPERHIDROSIS [None]
